FAERS Safety Report 14710690 (Version 2)
Quarter: 2019Q1

REPORT INFORMATION
  Report Type: Spontaneous
  Country: US (occurrence: US)
  Receive Date: 20180403
  Receipt Date: 20190214
  Transmission Date: 20190417
  Serious: No
  Sender: FDA-Public Use
  Company Number: US-ROCHE-1978872

PATIENT
  Age: 94 Year
  Sex: Female
  Weight: 45.85 kg

DRUGS (7)
  1. METOPROLOL. [Concomitant]
     Active Substance: METOPROLOL
     Route: 048
     Dates: start: 20170202
  2. ERIVEDGE [Suspect]
     Active Substance: VISMODEGIB
     Indication: BASAL CELL CARCINOMA
     Dosage: 1 CAPSULE ONCE
     Route: 048
     Dates: start: 20160210
  3. ERIVEDGE [Suspect]
     Active Substance: VISMODEGIB
     Indication: BASAL CELL CARCINOMA
     Dosage: TK 1 C PO QD
     Route: 048
     Dates: start: 20170210
  4. LOSARTAN. [Concomitant]
     Active Substance: LOSARTAN
     Route: 048
     Dates: start: 20170202
  5. ESCITALOPRAM [Concomitant]
     Active Substance: ESCITALOPRAM OXALATE
     Route: 048
     Dates: start: 20170202
  6. FLUZONE (CANADA) [Concomitant]
     Route: 030
     Dates: start: 20170419
  7. PNEUMOVAX 23 [Concomitant]
     Active Substance: PNEUMOCOCCAL VACCINE, POLYVALENT 23
     Route: 065
     Dates: start: 20170717

REACTIONS (3)
  - Alopecia [Unknown]
  - Ageusia [Unknown]
  - Alopecia [Unknown]

NARRATIVE: CASE EVENT DATE: 20180301
